FAERS Safety Report 6206888-6 (Version None)
Quarter: 2009Q2

REPORT INFORMATION
  Report Type: 
  Country: None (occurrence: None)
  Receive Date: 20090528
  Receipt Date: 20090525
  Transmission Date: 20091009
  Serious: Yes (Other)
  Sender: FDA-Public Use
  Company Number: GB-ASTRAZENECA-2005GB00195

PATIENT
  Age: 29185 Day
  Sex: Female
  Weight: 46.5 kg

DRUGS (5)
  1. ARIMIDEX [Suspect]
     Indication: BREAST CANCER
     Route: 048
     Dates: start: 19980813, end: 20030921
  2. SIMVASTATIN [Concomitant]
     Indication: HYPERCHOLESTEROLAEMIA
     Route: 048
  3. AMLODIPINE [Concomitant]
     Indication: HYPERTENSION
     Route: 048
  4. ASPIRIN [Concomitant]
     Indication: PROPHYLAXIS
     Route: 048
  5. PARACETAMOL [Concomitant]
     Indication: ANALGESIA
     Route: 048

REACTIONS (1)
  - RENAL FAILURE [None]
